FAERS Safety Report 13450818 (Version 12)
Quarter: 2018Q1

REPORT INFORMATION
  Report Type: Report from Study
  Country: US (occurrence: US)
  Receive Date: 20170418
  Receipt Date: 20180126
  Transmission Date: 20180508
  Serious: Yes (Hospitalization, Other)
  Sender: FDA-Public Use
  Company Number: US-GILEAD-2017-0262506

PATIENT
  Age: 67 Year
  Sex: Female
  Weight: 92 kg

DRUGS (30)
  1. AMBRISENTAN [Suspect]
     Active Substance: AMBRISENTAN
     Indication: RAYNAUD^S PHENOMENON
  2. RITUXAN [Suspect]
     Active Substance: RITUXIMAB
     Indication: PRODUCT USED FOR UNKNOWN INDICATION
     Route: 065
  3. K-DUR [Concomitant]
     Active Substance: POTASSIUM CHLORIDE
  4. ASPIRIN                            /00002701/ [Concomitant]
     Active Substance: ASPIRIN
  5. PLAVIX [Concomitant]
     Active Substance: CLOPIDOGREL BISULFATE
  6. LEVOTHYROXINE. [Concomitant]
     Active Substance: LEVOTHYROXINE
  7. VELETRI [Concomitant]
     Active Substance: EPOPROSTENOL
  8. SILDENAFIL CITRATE. [Concomitant]
     Active Substance: SILDENAFIL CITRATE
  9. DUONEB [Concomitant]
     Active Substance: ALBUTEROL SULFATE\IPRATROPIUM BROMIDE
  10. EPOPROSTENOL. [Concomitant]
     Active Substance: EPOPROSTENOL
  11. ADCIRCA [Concomitant]
     Active Substance: TADALAFIL
  12. SPIRIVA [Concomitant]
     Active Substance: TIOTROPIUM BROMIDE MONOHYDRATE
  13. POTASSIUM [Concomitant]
     Active Substance: POTASSIUM
  14. PRILOSEC [Concomitant]
     Active Substance: OMEPRAZOLE MAGNESIUM
  15. PRAVASTATIN. [Concomitant]
     Active Substance: PRAVASTATIN
  16. AMBRISENTAN [Suspect]
     Active Substance: AMBRISENTAN
     Indication: PULMONARY HYPERTENSION
     Dosage: 10 MG, QD
     Route: 048
     Dates: start: 20150901
  17. REVATIO [Concomitant]
     Active Substance: SILDENAFIL CITRATE
  18. UPTRAVI [Concomitant]
     Active Substance: SELEXIPAG
  19. TYLENOL [Concomitant]
     Active Substance: ACETAMINOPHEN
  20. FUROSEMIDE. [Concomitant]
     Active Substance: FUROSEMIDE
  21. VENTOLIN [Concomitant]
     Active Substance: ALBUTEROL SULFATE
  22. IMODIUM [Concomitant]
     Active Substance: LOPERAMIDE HYDROCHLORIDE
  23. ZOCOR [Concomitant]
     Active Substance: SIMVASTATIN
  24. ZOFRAN [Concomitant]
     Active Substance: ONDANSETRON HYDROCHLORIDE
  25. MULTIVITAMIN                       /00097801/ [Concomitant]
     Active Substance: VITAMINS
  26. FENOFIBRATE. [Concomitant]
     Active Substance: FENOFIBRATE
  27. ZOLOFT [Concomitant]
     Active Substance: SERTRALINE HYDROCHLORIDE
  28. SYNTHROID [Concomitant]
     Active Substance: LEVOTHYROXINE SODIUM
  29. SYMBICORT [Concomitant]
     Active Substance: BUDESONIDE\FORMOTEROL FUMARATE DIHYDRATE
  30. TYVASO [Concomitant]
     Active Substance: TREPROSTINIL

REACTIONS (17)
  - Abdominal distension [Not Recovered/Not Resolved]
  - Pulmonary oedema [Unknown]
  - Fluid retention [Recovered/Resolved]
  - Dyspnoea [Not Recovered/Not Resolved]
  - Headache [Unknown]
  - Pleural effusion [Unknown]
  - Pleural effusion [Recovered/Resolved]
  - Dyspnoea [Unknown]
  - Dyspnoea [Not Recovered/Not Resolved]
  - Peripheral swelling [Not Recovered/Not Resolved]
  - Intra-abdominal fluid collection [Unknown]
  - Productive cough [Recovered/Resolved]
  - Fluid overload [Unknown]
  - Weight increased [Unknown]
  - Localised oedema [Not Recovered/Not Resolved]
  - Oedema peripheral [Not Recovered/Not Resolved]
  - Dyspnoea [Recovered/Resolved]

NARRATIVE: CASE EVENT DATE: 20170521
